FAERS Safety Report 9502467 (Version 1)
Quarter: 2013Q3

REPORT INFORMATION
  Report Type: Spontaneous
  Country: TW (occurrence: TW)
  Receive Date: 20130906
  Receipt Date: 20130906
  Transmission Date: 20140515
  Serious: Yes (Other)
  Sender: FDA-Public Use
  Company Number: TW-BRISTOL-MYERS SQUIBB COMPANY-19249945

PATIENT
  Age: 75 Year
  Sex: Male

DRUGS (5)
  1. KOMBIGLYZE XR [Suspect]
     Indication: HYPERTENSION
     Dosage: 1 DF : 5MG/1000MG?TABLET
  2. KOMBIGLYZE XR [Suspect]
     Indication: DIABETES MELLITUS
     Dosage: 1 DF : 5MG/1000MG?TABLET
  3. AMARYL [Concomitant]
  4. NORVASC [Concomitant]
  5. COZAAR [Concomitant]

REACTIONS (1)
  - Jaundice [Not Recovered/Not Resolved]
